FAERS Safety Report 6783469-7 (Version None)
Quarter: 2010Q2

REPORT INFORMATION
  Report Type: 
  Country: None (occurrence: None)
  Receive Date: 20100622
  Receipt Date: 20100614
  Transmission Date: 20101027
  Serious: Yes (Other)
  Sender: FDA-Public Use
  Company Number: US-BAYER-201016895BCC

PATIENT
  Age: 78 Year
  Sex: Female
  Weight: 59 kg

DRUGS (5)
  1. NAPROXEN SODIUM [Suspect]
     Indication: DRUG USE FOR UNKNOWN INDICATION
     Route: 065
  2. ASPIRIN [Suspect]
     Indication: DRUG USE FOR UNKNOWN INDICATION
     Route: 065
  3. MOTRIN [Suspect]
     Indication: DRUG USE FOR UNKNOWN INDICATION
     Route: 065
  4. CELEBREX [Suspect]
     Indication: ARTHRITIS
     Dosage: TOTAL DAILY DOSE: 400 MG
     Route: 048
     Dates: start: 20000101
  5. RELAFEN [Suspect]
     Indication: DRUG USE FOR UNKNOWN INDICATION
     Route: 065

REACTIONS (3)
  - DRUG INTOLERANCE [None]
  - HIP ARTHROPLASTY [None]
  - RASH MACULAR [None]
